FAERS Safety Report 8202166-4 (Version None)
Quarter: 2012Q1

REPORT INFORMATION
  Report Type: 
  Country: None (occurrence: None)
  Receive Date: 20120312
  Receipt Date: 20120306
  Transmission Date: 20120608
  Serious: Yes (Death)
  Sender: FDA-Public Use
  Company Number: BR-PFIZER INC-2012059800

PATIENT
  Age: 95 Year
  Sex: Male

DRUGS (2)
  1. XALATAN [Suspect]
     Indication: GLAUCOMA
     Route: 047
  2. AMIODARONE HYDROCHLORIDE [Concomitant]
     Indication: CARDIAC DISORDER

REACTIONS (1)
  - CARDIAC DISORDER [None]
